FAERS Safety Report 9314319 (Version 1)
Quarter: 2013Q2

REPORT INFORMATION
  Report Type: Spontaneous
  Country: US (occurrence: US)
  Receive Date: 20130529
  Receipt Date: 20130529
  Transmission Date: 20140414
  Serious: Yes (Other)
  Sender: FDA-Public Use
  Company Number: PHHY2013US053428

PATIENT
  Age: 46 Year
  Sex: Male

DRUGS (3)
  1. SANDIMMUNE NEORAL [Suspect]
     Indication: BIRDSHOT CHORIORETINOPATHY
     Dosage: 200 MG, PER DAY
  2. CELLCEPT [Suspect]
     Indication: BIRDSHOT CHORIORETINOPATHY
     Dosage: 2 G, PER DAY
  3. METHYLPREDNISOLONE [Concomitant]
     Route: 042

REACTIONS (5)
  - Neuropathy peripheral [Recovered/Resolved]
  - Headache [Unknown]
  - Pain [Unknown]
  - Fatigue [Unknown]
  - Nausea [Unknown]
